FAERS Safety Report 11692685 (Version 4)
Quarter: 2017Q2

REPORT INFORMATION
  Report Type: Report from Study
  Country: FR (occurrence: FR)
  Receive Date: 20151103
  Receipt Date: 20170526
  Transmission Date: 20170829
  Serious: Yes (Death, Life-Threatening, Hospitalization, Disabling, Other)
  Sender: FDA-Public Use
  Company Number: PHHY2015FR063660

PATIENT
  Age: 80 Year
  Sex: Female

DRUGS (3)
  1. EXEMESTANE. [Suspect]
     Active Substance: EXEMESTANE
     Indication: BREAST CANCER
     Dosage: 25 MG, QD
     Route: 048
     Dates: start: 20141218
  2. AFINITOR [Suspect]
     Active Substance: EVEROLIMUS
     Dosage: 5 MG, QD
     Route: 048
     Dates: start: 20150128, end: 20150225
  3. AFINITOR [Suspect]
     Active Substance: EVEROLIMUS
     Indication: BREAST CANCER METASTATIC
     Dosage: 10 MG, QD
     Route: 048
     Dates: start: 20141218, end: 20150101

REACTIONS (11)
  - Mucosal inflammation [Recovering/Resolving]
  - Rash [Recovered/Resolved with Sequelae]
  - Stomatitis [Recovered/Resolved]
  - Pruritus [Unknown]
  - Skin lesion [Unknown]
  - Stomatitis [Recovered/Resolved]
  - Breast cancer metastatic [Fatal]
  - Rash erythematous [Recovered/Resolved with Sequelae]
  - Rash maculo-papular [Unknown]
  - General physical health deterioration [Fatal]
  - Malignant neoplasm progression [Fatal]

NARRATIVE: CASE EVENT DATE: 20141224
